FAERS Safety Report 5129400-1 (Version None)
Quarter: 2006Q4

REPORT INFORMATION
  Report Type: 
  Country: None (occurrence: None)
  Receive Date: 20061012
  Receipt Date: 20061002
  Transmission Date: 20070319
  Serious: Yes (Other)
  Sender: FDA-Public Use
  Company Number: 2006120815

PATIENT
  Sex: Male

DRUGS (2)
  1. NORPACE [Suspect]
     Indication: ARRHYTHMIA
     Dates: start: 19920101
  2. VIAGRA [Concomitant]

REACTIONS (6)
  - PULMONARY HYPERTENSION [None]
  - RAYNAUD'S PHENOMENON [None]
  - SCLERODERMA [None]
  - SKIN DISCOLOURATION [None]
  - SKIN HYPERPIGMENTATION [None]
  - SKIN REACTION [None]
